FAERS Safety Report 18711882 (Version 1)
Quarter: 2021Q1

REPORT INFORMATION
  Report Type: Spontaneous
  Country: GB (occurrence: VN)
  Receive Date: 20210107
  Receipt Date: 20210107
  Transmission Date: 20210419
  Serious: Yes (Other)
  Sender: FDA-Public Use
  Company Number: VN-ASTELLAS-2021US000699

PATIENT

DRUGS (1)
  1. TARCEVA [Suspect]
     Active Substance: ERLOTINIB HYDROCHLORIDE
     Indication: PRODUCT USED FOR UNKNOWN INDICATION
     Dosage: UNK UNK, UNKNOWN FREQ.
     Route: 048

REACTIONS (13)
  - Cough [Unknown]
  - Nail disorder [Recovered/Resolved]
  - Fatigue [Unknown]
  - Neoplasm [Unknown]
  - Pruritus [Recovered/Resolved]
  - Dyspnoea [Unknown]
  - Mouth ulceration [Recovered/Resolved]
  - Drug resistance [Unknown]
  - Acne [Recovered/Resolved]
  - Skin ulcer [Recovered/Resolved]
  - Onychalgia [Recovered/Resolved]
  - Thermal burn [Unknown]
  - Skin exfoliation [Unknown]
